FAERS Safety Report 4659269-0 (Version None)
Quarter: 2005Q2

REPORT INFORMATION
  Report Type: 
  Country: None (occurrence: None)
  Receive Date: 20050510
  Receipt Date: 20050427
  Transmission Date: 20051028
  Serious: Yes (Hospitalization)
  Sender: FDA-Public Use
  Company Number: S05-UKI-00493-01

PATIENT
  Age: 68 Year
  Sex: Female

DRUGS (2)
  1. EBIXA (MEMANTINE) [Suspect]
     Indication: DEMENTIA ALZHEIMER'S TYPE
     Dosage: 20 MG QD PO
     Route: 048
     Dates: start: 20041201, end: 20050103
  2. PAROXETINE [Concomitant]

REACTIONS (2)
  - GRAND MAL CONVULSION [None]
  - URINARY TRACT INFECTION [None]
